FAERS Safety Report 8240312-7 (Version None)
Quarter: 2012Q1

REPORT INFORMATION
  Report Type: 
  Country: None (occurrence: None)
  Receive Date: 20120328
  Receipt Date: 20120312
  Transmission Date: 20120608
  Serious: Yes (Other)
  Sender: FDA-Public Use
  Company Number: JP-PFIZER INC-2012061358

PATIENT
  Age: 76 Year
  Sex: Female
  Weight: 66 kg

DRUGS (4)
  1. FUROSEMIDE [Suspect]
     Indication: HYPERTENSION
     Dosage: 40 MG, 1X/DAY
     Route: 048
  2. OLMESARTAN MEDOXOMIL [Interacting]
     Indication: HYPERTENSION
     Dosage: 20 MG, 1X/DAY
     Route: 048
  3. ALDACTONE [Interacting]
     Indication: HYPERTENSION
     Dosage: 25 MG, 1X/DAY
     Route: 048
  4. ALFACALCIDOL [Interacting]
     Indication: PRODUCT USED FOR UNKNOWN INDICATION
     Dosage: 1 UG, UNK

REACTIONS (9)
  - BLOOD CREATININE INCREASED [None]
  - URINARY TRACT INFECTION [None]
  - HYPERCALCAEMIA [None]
  - DEHYDRATION [None]
  - AZOTAEMIA [None]
  - LOSS OF CONSCIOUSNESS [None]
  - CONVULSION [None]
  - DRUG INTERACTION [None]
  - HYPERKALAEMIA [None]
